FAERS Safety Report 11734462 (Version 1)
Quarter: 2015Q4

REPORT INFORMATION
  Report Type: Report from Study
  Country: US (occurrence: US)
  Receive Date: 20151113
  Receipt Date: 20151113
  Transmission Date: 20160304
  Serious: Yes (Other)
  Sender: FDA-Public Use
  Company Number: PHEH2015US023223

PATIENT
  Sex: Male
  Weight: 104.31 kg

DRUGS (1)
  1. GILENYA [Suspect]
     Active Substance: FINGOLIMOD HYDROCHLORIDE
     Indication: MULTIPLE SCLEROSIS
     Dosage: 0.5 MG, QD
     Route: 048
     Dates: start: 20140730

REACTIONS (5)
  - Vertigo [Recovered/Resolved]
  - Hypoacusis [Not Recovered/Not Resolved]
  - Meniere^s disease [Unknown]
  - Weight increased [Unknown]
  - Drop attacks [Recovered/Resolved]
